FAERS Safety Report 4557868-8 (Version None)
Quarter: 2005Q1

REPORT INFORMATION
  Report Type: 
  Country: None (occurrence: None)
  Receive Date: 20050121
  Receipt Date: 20021015
  Transmission Date: 20050727
  Serious: No
  Sender: FDA-Public Use
  Company Number: US-BRISTOL-MYERS SQUIBB COMPANY-12077731

PATIENT
  Age: 29 Year
  Sex: Female
  Weight: 75 kg

DRUGS (2)
  1. SERZONE [Suspect]
     Indication: DEPRESSION
     Dosage: ^100 MG IN THE MORNING + 200 MG FOR APPROXIMATELY 2 WEEKS^.
     Route: 048
     Dates: start: 20020911, end: 20021004
  2. REMERON [Concomitant]

REACTIONS (2)
  - DRUG EXPOSURE DURING PREGNANCY [None]
  - NORMAL NEWBORN [None]
